FAERS Safety Report 7385019-3 (Version None)
Quarter: 2011Q1

REPORT INFORMATION
  Report Type: 
  Country: None (occurrence: None)
  Receive Date: 20110330
  Receipt Date: 20110317
  Transmission Date: 20110831
  Serious: Yes (Hospitalization)
  Sender: FDA-Public Use
  Company Number: JP-BAYER-2011-021719

PATIENT
  Sex: Male
  Weight: 59.7 kg

DRUGS (14)
  1. LANSOPRAZOLE [Concomitant]
  2. ACETYLSALICYLIC ACID SRT [Interacting]
  3. HEPARIN SODIUM [Concomitant]
  4. FERROUS SULFATE TAB [Concomitant]
  5. CARVEDILOL [Concomitant]
  6. ACETYLSALICYLIC ACID SRT [Suspect]
     Indication: ACUTE CORONARY SYNDROME
     Dates: end: 20100812
  7. ROSUVASTATIN CALCIUM [Concomitant]
  8. BENIDIPINE HYDROCHLORIDE [Concomitant]
  9. CLOPIDOGREL [Interacting]
     Indication: ACUTE CORONARY SYNDROME
  10. INFLUENZA HA VACCINE [Concomitant]
  11. TELMISARTAN [Concomitant]
  12. ISOSORBIDE DINITRATE [Concomitant]
  13. RIVAROXABAN [Interacting]
     Indication: ACUTE CORONARY SYNDROME
     Dosage: DOSAGE FORM: TABLET, 2.5MG OR 5MG DAILY
     Route: 048
     Dates: start: 20100819
  14. CLOPIDOGREL [Interacting]
     Dates: end: 20100812

REACTIONS (2)
  - ANAL FISTULA [None]
  - POST PROCEDURAL HAEMORRHAGE [None]
